FAERS Safety Report 6017323-5 (Version None)
Quarter: 2008Q4

REPORT INFORMATION
  Report Type: 
  Country: None (occurrence: None)
  Receive Date: 20081223
  Receipt Date: 20081017
  Transmission Date: 20090506
  Serious: Yes (Other)
  Sender: FDA-Public Use
  Company Number: MX-BAYER-200823787LA

PATIENT
  Sex: Female

DRUGS (1)
  1. YASMIN [Suspect]
     Indication: ORAL CONTRACEPTION
     Route: 048

REACTIONS (6)
  - ANOREXIA [None]
  - HEADACHE [None]
  - NAUSEA [None]
  - PAIN [None]
  - SOMNOLENCE [None]
  - VOMITING [None]
